FAERS Safety Report 17150900 (Version 1)
Quarter: 2019Q4

REPORT INFORMATION
  Report Type: Report from Study
  Country: US (occurrence: US)
  Receive Date: 20191213
  Receipt Date: 20191213
  Transmission Date: 20200122
  Serious: Yes (Hospitalization)
  Sender: FDA-Public Use
  Company Number: US-ROCHE-2486091

PATIENT
  Sex: Female
  Weight: 41.77 kg

DRUGS (1)
  1. RITUXAN [Suspect]
     Active Substance: RITUXIMAB
     Indication: MULTIPLE SCLEROSIS
     Dosage: EVERY 4 TO 6 MONTHS
     Route: 065
     Dates: end: 2017

REACTIONS (3)
  - Dehydration [Unknown]
  - Cardiac failure [Unknown]
  - Malaise [Unknown]
